FAERS Safety Report 16296352 (Version 1)
Quarter: 2019Q2

REPORT INFORMATION
  Report Type: Spontaneous
  Country: DE (occurrence: DE)
  Receive Date: 20190510
  Receipt Date: 20190510
  Transmission Date: 20190711
  Serious: Yes (Other)
  Sender: FDA-Public Use
  Company Number: PHHY2019DE104894

PATIENT
  Age: 40 Year
  Sex: Female
  Weight: 63 kg

DRUGS (2)
  1. CIPROFLOXACIN. [Suspect]
     Active Substance: CIPROFLOXACIN
     Indication: URINARY TRACT INFECTION
     Dosage: 1600 MG, UNK (TOTAL)(4X400MG IN 1.5 TAGEN)
     Route: 042
     Dates: start: 201605
  2. CIPROFLOXACIN. [Suspect]
     Active Substance: CIPROFLOXACIN
     Indication: BLADDER PAIN

REACTIONS (15)
  - Hyperacusis [Unknown]
  - Fibromyalgia [Recovered/Resolved with Sequelae]
  - Nausea [Unknown]
  - Paralysis [Recovered/Resolved with Sequelae]
  - Connective tissue disorder [Recovered/Resolved with Sequelae]
  - Asthenia [Unknown]
  - Dizziness [Unknown]
  - Migraine [Unknown]
  - Headache [Unknown]
  - Fatigue [Recovered/Resolved with Sequelae]
  - Myalgia [Recovered/Resolved with Sequelae]
  - Tinnitus [Unknown]
  - Impaired work ability [Recovered/Resolved with Sequelae]
  - Multiple chemical sensitivity [Recovered/Resolved with Sequelae]
  - Paraesthesia [Recovered/Resolved with Sequelae]

NARRATIVE: CASE EVENT DATE: 2016
